FAERS Safety Report 6429874-X (Version None)
Quarter: 2009Q4

REPORT INFORMATION
  Report Type: 
  Country: None (occurrence: None)
  Receive Date: 20091106
  Receipt Date: 20091030
  Transmission Date: 20100525
  Serious: Yes (Hospitalization)
  Sender: FDA-Public Use
  Company Number: JP-ASTRAZENECA-2009SE23500

PATIENT
  Age: 77 Year
  Sex: Female

DRUGS (2)
  1. XYLOCAINE [Suspect]
     Indication: LOCAL ANAESTHESIA
     Route: 049
  2. XYLOCAINE [Suspect]
     Indication: LOCAL ANAESTHESIA
     Route: 049

REACTIONS (2)
  - DYSPNOEA [None]
  - PYREXIA [None]
